FAERS Safety Report 9918246 (Version 1)
Quarter: 2014Q1

REPORT INFORMATION
  Report Type: Report from Study
  Country: US (occurrence: US)
  Receive Date: 20140224
  Receipt Date: 20140224
  Transmission Date: 20141002
  Serious: Yes (Other)
  Sender: FDA-Public Use
  Company Number: US-ROCHE-1332223

PATIENT
  Age: 50 Year
  Sex: Male

DRUGS (4)
  1. AVASTIN [Suspect]
     Indication: RETINAL VEIN OCCLUSION
     Route: 065
  2. AVASTIN [Suspect]
     Indication: RETINAL OEDEMA
  3. LUCENTIS [Suspect]
     Indication: RETINAL VEIN OCCLUSION
     Route: 050
     Dates: start: 201008
  4. LUCENTIS [Suspect]
     Indication: RETINAL OEDEMA

REACTIONS (3)
  - Eyelid oedema [Unknown]
  - Cataract nuclear [Unknown]
  - Eyelid ptosis [Unknown]
